FAERS Safety Report 25204851 (Version 1)
Quarter: 2025Q2

REPORT INFORMATION
  Report Type: Spontaneous
  Country: FR (occurrence: FR)
  Receive Date: 20250416
  Receipt Date: 20250416
  Transmission Date: 20250717
  Serious: Yes (Death, Other)
  Sender: AMGEN
  Company Number: FR-AMGEN-FRASP2025073099

PATIENT

DRUGS (1)
  1. PROLIA [Suspect]
     Active Substance: DENOSUMAB
     Indication: Osteoporosis postmenopausal
     Route: 065

REACTIONS (14)
  - Death [Fatal]
  - Scapula fracture [Unknown]
  - Wrist fracture [Unknown]
  - Hip fracture [Unknown]
  - Thoracic vertebral fracture [Unknown]
  - Lumbar vertebral fracture [Unknown]
  - Clavicle fracture [Unknown]
  - Rib fracture [Unknown]
  - Fractured sacrum [Unknown]
  - Upper limb fracture [Unknown]
  - Hand fracture [Unknown]
  - Pelvic fracture [Unknown]
  - Foot fracture [Unknown]
  - Humerus fracture [Unknown]
